FAERS Safety Report 9344715 (Version 1)
Quarter: 2013Q2

REPORT INFORMATION
  Report Type: Spontaneous
  Country: FR (occurrence: FR)
  Receive Date: 20130612
  Receipt Date: 20130612
  Transmission Date: 20140414
  Serious: Yes (Other)
  Sender: FDA-Public Use
  Company Number: FR-PFIZER INC-2013172218

PATIENT
  Age: 81 Year
  Sex: Female

DRUGS (2)
  1. CADUET [Suspect]
     Dosage: 5 MG/10 MG, UNK
     Dates: start: 20130604
  2. LASILIX [Concomitant]
     Dosage: 20

REACTIONS (1)
  - Urine output decreased [Unknown]
